FAERS Safety Report 8805129 (Version 1)
Quarter: 2012Q4

REPORT INFORMATION
  Report Type: 
  Country: US (occurrence: US)
  Receive Date: 20120924
  Receipt Date: 20120924
  Transmission Date: 20130627
  Serious: No
  Sender: FDA-Public Use
  Company Number: US-ALLERGAN-1208432US

PATIENT
  Age: 58 Year
  Sex: Female

DRUGS (2)
  1. LUMIGAN� 0.01% [Suspect]
     Indication: PRESSURE INTRAOCULAR INCREASED
     Dosage: UNK
     Route: 047
  2. INSULIN PUMP [Concomitant]
     Indication: DIABETES
     Dosage: UNK

REACTIONS (1)
  - Intraocular pressure increased [Not Recovered/Not Resolved]
